FAERS Safety Report 5938381-X (Version None)
Quarter: 2008Q4

REPORT INFORMATION
  Report Type: 
  Country: None (occurrence: None)
  Receive Date: 20081103
  Receipt Date: 20081029
  Transmission Date: 20090506
  Serious: Yes (Hospitalization)
  Sender: FDA-Public Use
  Company Number: US-BRISTOL-MYERS SQUIBB COMPANY-14387393

PATIENT
  Age: 58 Year
  Sex: Male
  Weight: 172 kg

DRUGS (3)
  1. CISPLATIN [Suspect]
     Indication: OESOPHAGEAL CARCINOMA
     Dosage: START DATE OF FIRST COURSE: 22-SEP-2008.
     Dates: start: 20081020, end: 20081020
  2. TAXOL [Suspect]
     Indication: OESOPHAGEAL CARCINOMA
     Dosage: START DATE OF FIRST COURSE: 22-SEP-2008.
     Dates: start: 20081020, end: 20081020
  3. RADIATION THERAPY [Suspect]
     Indication: OESOPHAGEAL CARCINOMA
     Dosage: 1 DOSAGE FORM = 4680 CGY LAST ADMN DATE: 24-OCT-2008
     Dates: start: 20080922

REACTIONS (3)
  - DEHYDRATION [None]
  - DYSPHAGIA [None]
  - OESOPHAGITIS [None]
